FAERS Safety Report 6419274-0 (Version None)
Quarter: 2009Q4

REPORT INFORMATION
  Report Type: 
  Country: None (occurrence: None)
  Receive Date: 20091029
  Receipt Date: 20091015
  Transmission Date: 20100525
  Serious: Yes (Hospitalization, Other)
  Sender: FDA-Public Use
  Company Number: PHEH2009US13908

PATIENT
  Age: 63 Year
  Sex: Female

DRUGS (2)
  1. TEKTURNA [Suspect]
     Dosage: 300 MG, QD
  2. COREG [Concomitant]
     Dosage: 3.125 MG, BID

REACTIONS (2)
  - BLOOD PRESSURE DIASTOLIC INCREASED [None]
  - THALAMUS HAEMORRHAGE [None]
